FAERS Safety Report 7366798-8 (Version None)
Quarter: 2011Q1

REPORT INFORMATION
  Report Type: 
  Country: None (occurrence: None)
  Receive Date: 20110322
  Receipt Date: 20110314
  Transmission Date: 20110831
  Serious: Yes (Other)
  Sender: FDA-Public Use
  Company Number: US-ROCHE-765206

PATIENT
  Age: 24 Year
  Sex: Female

DRUGS (3)
  1. IRINOTECAN HYDROCHLORIDE [Concomitant]
     Indication: GLIOBLASTOMA MULTIFORME
  2. BEVACIZUMAB [Suspect]
     Indication: GLIOBLASTOMA MULTIFORME
     Route: 065
  3. TEMOZOLOMIDE [Concomitant]
     Indication: GLIOBLASTOMA MULTIFORME

REACTIONS (1)
  - OPTIC NEUROPATHY [None]
